FAERS Safety Report 9727344 (Version 2)
Quarter: 2014Q1

REPORT INFORMATION
  Report Type: Spontaneous
  Country: US (occurrence: US)
  Receive Date: 20131203
  Receipt Date: 20140324
  Transmission Date: 20141002
  Serious: No
  Sender: FDA-Public Use
  Company Number: US-JNJFOC-20131200142

PATIENT
  Sex: Male

DRUGS (12)
  1. RISPERDAL [Suspect]
     Indication: ATTENTION DEFICIT/HYPERACTIVITY DISORDER
     Route: 048
     Dates: start: 2006, end: 2013
  2. RISPERDAL [Suspect]
     Indication: ANXIETY
     Route: 048
     Dates: start: 2006, end: 2013
  3. RISPERDAL [Suspect]
     Indication: AUTISM
     Route: 048
     Dates: start: 2006, end: 2013
  4. INVEGA OROS [Suspect]
     Indication: ANXIETY
     Route: 048
     Dates: start: 2010
  5. INVEGA OROS [Suspect]
     Indication: AUTISM
     Route: 048
     Dates: start: 2010
  6. INVEGA OROS [Suspect]
     Indication: ATTENTION DEFICIT/HYPERACTIVITY DISORDER
     Route: 048
     Dates: start: 2010
  7. INVEGA OROS [Suspect]
     Indication: ATTENTION DEFICIT/HYPERACTIVITY DISORDER
     Route: 048
     Dates: start: 2010
  8. CONCERTA [Suspect]
     Indication: PRODUCT USED FOR UNKNOWN INDICATION
     Route: 048
  9. ABILIFY [Concomitant]
     Route: 065
  10. DEXTROAMPHETAMINE [Concomitant]
     Route: 065
  11. FOCALIN [Concomitant]
     Route: 065
  12. DEPAKOTE [Concomitant]
     Route: 065

REACTIONS (10)
  - Urinary incontinence [Unknown]
  - Emotional distress [Unknown]
  - Dyskinesia [Unknown]
  - Hyperprolactinaemia [Unknown]
  - Gynaecomastia [Unknown]
  - Weight increased [Unknown]
  - Pain [Unknown]
  - Musculoskeletal stiffness [Unknown]
  - Lethargy [Unknown]
  - Obesity [Unknown]
